FAERS Safety Report 9405347 (Version 2)
Quarter: 2013Q3

REPORT INFORMATION
  Report Type: Spontaneous
  Country: DE (occurrence: None)
  Receive Date: 20130703
  Receipt Date: 20130729
  Transmission Date: 20140515
  Serious: Yes (Hospitalization)
  Sender: FDA-Public Use
  Company Number: 2013036665

PATIENT
  Age: 14 Year
  Sex: Male

DRUGS (2)
  1. HAEMATE P [Suspect]
     Indication: VON WILLEBRAND^S DISEASE
     Dosage: 2000 IU, KIND OF THERAPY: SINCE 25-JUN-2009 ON DEMAND, SINCE 09-NOV-2009 PROPH., }3 INF. PER WEEK
  2. HAEMATE P [Suspect]
     Indication: FACTOR VIII DEFICIENCY
     Dosage: 2000 IU, KIND OF THERAPY: SINCE 25-JUN-2009 ON DEMAND, SINCE 09-NOV-2009 PROPH., }3 INF. PER WEEK

REACTIONS (3)
  - Retinal detachment [None]
  - Retinopathy proliferative [None]
  - Vitreous haemorrhage [None]
